FAERS Safety Report 7578110-X (Version None)
Quarter: 2011Q2

REPORT INFORMATION
  Report Type: 
  Country: None (occurrence: None)
  Receive Date: 20110628
  Receipt Date: 20110617
  Transmission Date: 20111010
  Serious: Yes (Hospitalization)
  Sender: FDA-Public Use
  Company Number: BR-US-EMD SERONO, INC.-7066242

PATIENT
  Sex: Female

DRUGS (2)
  1. UNSPECIFIED MEDICATION [Concomitant]
     Indication: PAIN
  2. REBIF [Suspect]
     Indication: RELAPSING-REMITTING MULTIPLE SCLEROSIS
     Dates: start: 20081031

REACTIONS (5)
  - LIMB INJURY [None]
  - SKIN BACTERIAL INFECTION [None]
  - BLOOD PRESSURE FLUCTUATION [None]
  - FATIGUE [None]
  - ASTHENIA [None]
